FAERS Safety Report 23344409 (Version 2)
Quarter: 2024Q1

REPORT INFORMATION
  Report Type: Spontaneous
  Country: US (occurrence: US)
  Receive Date: 20231228
  Receipt Date: 20240105
  Transmission Date: 20240410
  Serious: Yes (Other)
  Sender: FDA-Public Use
  Company Number: US-BRISTOL-MYERS SQUIBB COMPANY-2023-186994

PATIENT
  Age: 81 Year
  Sex: Female

DRUGS (1)
  1. LENALIDOMIDE [Suspect]
     Active Substance: LENALIDOMIDE
     Indication: Generalised anxiety disorder
     Dosage: TAKE 1 CAPSULE BY MOUTH EVERY DAY
     Route: 048

REACTIONS (8)
  - Back pain [Not Recovered/Not Resolved]
  - Flatulence [Not Recovered/Not Resolved]
  - Fatigue [Not Recovered/Not Resolved]
  - Somnolence [Unknown]
  - Neoplasm malignant [Unknown]
  - Stress [Not Recovered/Not Resolved]
  - Off label use [Unknown]
  - Food allergy [Unknown]
